FAERS Safety Report 9410537 (Version 1)
Quarter: 2013Q3

REPORT INFORMATION
  Report Type: Spontaneous
  Country: FR (occurrence: FR)
  Receive Date: 20130719
  Receipt Date: 20130719
  Transmission Date: 20140515
  Serious: Yes (Other)
  Sender: FDA-Public Use
  Company Number: FR-PFIZER INC-2013204488

PATIENT
  Age: 17 Year
  Sex: Female

DRUGS (3)
  1. ADVIL [Suspect]
     Dosage: 400 MG, SINGLE
     Route: 048
     Dates: start: 201212, end: 201212
  2. PARACETAMOL [Concomitant]
     Dosage: UNK
  3. DIANE-35 [Concomitant]
     Dosage: UNK
     Route: 048
     Dates: start: 201210

REACTIONS (4)
  - Haematuria [Recovered/Resolved]
  - Proteinuria [Recovered/Resolved]
  - Asthenia [Unknown]
  - Back pain [Unknown]
